FAERS Safety Report 16044854 (Version 3)
Quarter: 2020Q2

REPORT INFORMATION
  Report Type: Spontaneous
  Country: US (occurrence: US)
  Receive Date: 20190307
  Receipt Date: 20200409
  Transmission Date: 20200713
  Serious: Yes (Other)
  Sender: FDA-Public Use
  Company Number: US-AMGEN INC.-USASP2019034782

PATIENT

DRUGS (1)
  1. AIMOVIG [Suspect]
     Active Substance: ERENUMAB-AOOE
     Indication: HEADACHE
     Dosage: UNK
     Route: 065
     Dates: start: 201902

REACTIONS (2)
  - Gastrointestinal hypomotility [Unknown]
  - Abdominal pain upper [Unknown]

NARRATIVE: CASE EVENT DATE: 2019
